FAERS Safety Report 14275237 (Version 3)
Quarter: 2019Q1

REPORT INFORMATION
  Report Type: Other
  Country: DE (occurrence: DE)
  Receive Date: 20171212
  Receipt Date: 20190307
  Transmission Date: 20190417
  Serious: Yes (Hospitalization, Other)
  Sender: FDA-Public Use
  Company Number: DE-MACLEODS PHARMACEUTICALS US LTD-MAC2017006462

PATIENT

DRUGS (25)
  1. QUETIAPINE. [Suspect]
     Active Substance: QUETIAPINE
     Dosage: 700 MG, QD
     Route: 048
     Dates: start: 20170731
  2. QUETIAPINE. [Suspect]
     Active Substance: QUETIAPINE
     Dosage: 900 MG, QD
     Route: 048
     Dates: start: 20170804, end: 20170808
  3. AMISULPRIDE [Concomitant]
     Active Substance: AMISULPRIDE
     Indication: PRODUCT USED FOR UNKNOWN INDICATION
     Dosage: 400 MG, UNK
     Route: 065
     Dates: start: 20170806
  4. AMISULPRIDE [Concomitant]
     Active Substance: AMISULPRIDE
     Dosage: 600 MG, UNK
     Route: 065
     Dates: start: 20170822
  5. AMISULPRIDE [Concomitant]
     Active Substance: AMISULPRIDE
     Dosage: 800 MG, UNK
     Route: 065
     Dates: start: 20170824
  6. AMISULPRIDE [Concomitant]
     Active Substance: AMISULPRIDE
     Dosage: 600 MILLIGRAM
     Route: 065
     Dates: start: 20170809
  7. LORAZEPAM. [Concomitant]
     Active Substance: LORAZEPAM
     Dosage: 1.5 MG, QD, TABLET
     Route: 048
     Dates: start: 20170803, end: 20170809
  8. LORAZEPAM. [Concomitant]
     Active Substance: LORAZEPAM
     Dosage: 2 MG, QD, TABLET
     Route: 048
     Dates: start: 20170801, end: 20170802
  9. QUETIAPINE. [Suspect]
     Active Substance: QUETIAPINE
     Dosage: 800 MG, QD
     Route: 048
     Dates: start: 20170801, end: 20170803
  10. QUETIAPINE. [Suspect]
     Active Substance: QUETIAPINE
     Dosage: 800 MG, QD
     Route: 048
     Dates: start: 20170809, end: 20170830
  11. QUETIAPINE. [Suspect]
     Active Substance: QUETIAPINE
     Dosage: 600 MG, QD
     Route: 048
     Dates: start: 20170830
  12. AMISULPRIDE [Concomitant]
     Active Substance: AMISULPRIDE
     Dosage: 900 MG, UNK
     Route: 065
     Dates: start: 20170901
  13. LORAZEPAM. [Concomitant]
     Active Substance: LORAZEPAM
     Dosage: 1.5 MG, QD,TABLET
     Route: 048
     Dates: start: 20170812, end: 20170814
  14. LORAZEPAM. [Concomitant]
     Active Substance: LORAZEPAM
     Dosage: 1 MG, QD TABLET
     Route: 048
     Dates: start: 20170815, end: 20170816
  15. ARIPIPRAZOLE. [Suspect]
     Active Substance: ARIPIPRAZOLE
     Indication: PRODUCT USED FOR UNKNOWN INDICATION
     Dosage: 25 MG, QD, TABLET
     Route: 048
     Dates: start: 20170805
  16. ARIPIPRAZOLE. [Suspect]
     Active Substance: ARIPIPRAZOLE
     Dosage: 10 MG, QD TABLET
     Route: 048
     Dates: start: 20170806, end: 20170807
  17. AMISULPRIDE [Concomitant]
     Active Substance: AMISULPRIDE
     Dosage: 400 UNK
     Route: 065
  18. LORAZEPAM. [Concomitant]
     Active Substance: LORAZEPAM
     Dosage: 2 MG, QD TABLET
     Route: 048
     Dates: start: 20170810, end: 20170811
  19. QUETIAPINE. [Suspect]
     Active Substance: QUETIAPINE
     Indication: SCHIZOPHRENIA
     Dosage: 600 MG, QD
     Route: 048
  20. AMISULPRIDE [Concomitant]
     Active Substance: AMISULPRIDE
     Dosage: 500 MG, UNK
     Route: 065
     Dates: start: 20170808
  21. AMISULPRIDE [Concomitant]
     Active Substance: AMISULPRIDE
     Dosage: 900 MILLIGRAM
     Route: 065
  22. ARIPIPRAZOLE. [Suspect]
     Active Substance: ARIPIPRAZOLE
     Indication: SCHIZOPHRENIA
     Dosage: 30 MG, QD, TABLET
     Route: 048
     Dates: start: 20161001, end: 20170801
  23. AMISULPRIDE [Concomitant]
     Active Substance: AMISULPRIDE
     Dosage: 500 MILLIGRAM
     Route: 065
  24. LORAZEPAM. [Concomitant]
     Active Substance: LORAZEPAM
     Indication: PRODUCT USED FOR UNKNOWN INDICATION
     Dosage: 1.5 MG, QD, TABLET
     Route: 048
     Dates: start: 20170731
  25. LORAZEPAM. [Concomitant]
     Active Substance: LORAZEPAM
     Dosage: 0.5 MG, QD TABLET
     Route: 048
     Dates: start: 20170817, end: 20170817

REACTIONS (5)
  - Alopecia [Not Recovered/Not Resolved]
  - Vitamin B12 decreased [Unknown]
  - Blood folate decreased [Unknown]
  - Fatigue [Not Recovered/Not Resolved]
  - Macrocytosis [Recovered/Resolved]

NARRATIVE: CASE EVENT DATE: 20170802
